FAERS Safety Report 10554939 (Version 1)
Quarter: 2014Q4

REPORT INFORMATION
  Report Type: Spontaneous
  Country: US (occurrence: US)
  Receive Date: 20141030
  Receipt Date: 20141030
  Transmission Date: 20150529
  Serious: No
  Sender: FDA-Public Use
  Company Number: US-GLAXOSMITHKLINE-US2014005318

PATIENT
  Sex: Male

DRUGS (1)
  1. ADVAIR DISKUS [Suspect]
     Active Substance: FLUTICASONE PROPIONATE\SALMETEROL XINAFOATE
     Indication: BRONCHITIS
     Dosage: 1 PUFF(S), BID
     Route: 055
     Dates: start: 2014

REACTIONS (11)
  - Mood swings [Not Recovered/Not Resolved]
  - Dysgeusia [Unknown]
  - Anxiety [Not Recovered/Not Resolved]
  - Dysphonia [Unknown]
  - Blood pressure increased [Unknown]
  - Wheezing [Unknown]
  - Muscle spasms [Recovered/Resolved]
  - Agitation [Not Recovered/Not Resolved]
  - Depression [Not Recovered/Not Resolved]
  - Dyspnoea [Unknown]
  - Insomnia [Not Recovered/Not Resolved]

NARRATIVE: CASE EVENT DATE: 2014
